FAERS Safety Report 15994058 (Version 1)
Quarter: 2019Q1

REPORT INFORMATION
  Report Type: Spontaneous
  Country: FR (occurrence: FR)
  Receive Date: 20190222
  Receipt Date: 20190222
  Transmission Date: 20190418
  Serious: Yes (Hospitalization)
  Sender: FDA-Public Use
  Company Number: FR-ORION CORPORATION ORION PHARMA-19_00005506

PATIENT
  Age: 49 Year
  Sex: Male
  Weight: 71 kg

DRUGS (6)
  1. VOGALENE [Suspect]
     Active Substance: METOPIMAZINE
     Indication: NAUSEA
     Route: 048
     Dates: start: 201807, end: 201808
  2. METHOTREXATE (TRADE NAME UNKNOWN) [Suspect]
     Active Substance: METHOTREXATE
     Indication: MYCOSIS FUNGOIDES
     Route: 048
     Dates: start: 2014, end: 20180817
  3. OFLOCET [Suspect]
     Active Substance: OFLOXACIN
     Indication: DIARRHOEA
     Route: 048
     Dates: start: 20180811, end: 20180816
  4. TARGRETIN [Suspect]
     Active Substance: BEXAROTENE
     Indication: MYCOSIS FUNGOIDES
     Dosage: 5CP
     Route: 048
     Dates: start: 2014
  5. PARACETAMOL MACOPHARMA [Suspect]
     Active Substance: ACETAMINOPHEN
     Indication: PAIN
     Route: 065
     Dates: start: 20180817, end: 20180822
  6. DOLIPRANE [Suspect]
     Active Substance: ACETAMINOPHEN
     Indication: PAIN
     Route: 048
     Dates: start: 201807, end: 20180817

REACTIONS (2)
  - Hyperbilirubinaemia [Recovering/Resolving]
  - Product use in unapproved indication [Unknown]

NARRATIVE: CASE EVENT DATE: 20180813
